FAERS Safety Report 7183189-3 (Version None)
Quarter: 2010Q4

REPORT INFORMATION
  Report Type: 
  Country: None (occurrence: None)
  Receive Date: 20101208
  Receipt Date: 20101125
  Transmission Date: 20110411
  Serious: Yes (Hospitalization, Other)
  Sender: FDA-Public Use
  Company Number: 1000017134

PATIENT
  Age: 28 Year
  Sex: Female

DRUGS (6)
  1. ESCITALOPRAM [Suspect]
     Indication: DEPRESSION
     Dosage: 10 MG (10 MG, 1 IN 1 D), ORAL; 20 MG (20 MG, 1 IN 1 D), ORAL
     Route: 048
     Dates: start: 20080710, end: 20081001
  2. ESCITALOPRAM [Suspect]
     Indication: DEPRESSION
     Dosage: 10 MG (10 MG, 1 IN 1 D), ORAL; 20 MG (20 MG, 1 IN 1 D), ORAL
     Route: 048
     Dates: start: 20081001
  3. LAMOTRIGIN (LAMOTRIGINE) (TABLETS) (LAMOTRIGINE) [Concomitant]
  4. LITHIONIT (LITHIUM SULFATE) (TABLETS) (LITHIUM SULFATE) [Concomitant]
  5. SOBRIL (OXAZEPAM) (TABLETS) (OXAZEPAM) [Concomitant]
  6. ATARAX (HYDROXYZINE) (TABLETS) (HYDROXYZINE) [Concomitant]

REACTIONS (10)
  - ABNORMAL BEHAVIOUR [None]
  - BIPOLAR DISORDER [None]
  - CONDITION AGGRAVATED [None]
  - DEPRESSION [None]
  - GENERALISED ANXIETY DISORDER [None]
  - MANIA [None]
  - MENTAL DISORDER [None]
  - POST-TRAUMATIC STRESS DISORDER [None]
  - SOCIAL PHOBIA [None]
  - SUICIDAL IDEATION [None]
